FAERS Safety Report 8348952-1 (Version None)
Quarter: 2012Q2

REPORT INFORMATION
  Report Type: 
  Country: None (occurrence: None)
  Receive Date: 20120508
  Receipt Date: 20120426
  Transmission Date: 20120825
  Serious: Yes (Hospitalization)
  Sender: FDA-Public Use
  Company Number: DSA_56349_2012

PATIENT
  Age: 73 Year
  Sex: Female

DRUGS (3)
  1. VANCOMYCIN [Suspect]
     Dosage: (30 MG/KG)
     Dates: start: 20120310
  2. RIFAMPICIN [Suspect]
     Dosage: (600 MG BID)
     Dates: start: 20120313
  3. FLAGYL [Suspect]
     Indication: BACTERAEMIA
     Dosage: (500 MG TID)
     Dates: start: 20120317

REACTIONS (2)
  - TOXIC SKIN ERUPTION [None]
  - DERMATITIS EXFOLIATIVE [None]
